FAERS Safety Report 5306573-9 (Version None)
Quarter: 2007Q2

REPORT INFORMATION
  Report Type: 
  Country: None (occurrence: None)
  Receive Date: 20070418
  Receipt Date: 20070403
  Transmission Date: 20071010
  Serious: Yes (Hospitalization)
  Sender: FDA-Public Use
  Company Number: MEDI-0005326

PATIENT
  Age: 15 Month
  Sex: Male

DRUGS (7)
  1. SYNAGIS [Suspect]
     Indication: ANTIVIRAL PROPHYLAXIS
     Dosage: 100 MG, 1 IN 1 M, INTRAMUSCULAR
     Route: 030
     Dates: start: 20060130, end: 20060329
  2. SYNAGIS [Suspect]
     Indication: BRONCHOPULMONARY DYSPLASIA
     Dosage: 100 MG, 1 IN 1 M, INTRAMUSCULAR
     Route: 030
     Dates: start: 20060130, end: 20060329
  3. SYNAGIS [Suspect]
     Indication: PREMATURE BABY
     Dosage: 100 MG, 1 IN 1 M, INTRAMUSCULAR
     Route: 030
     Dates: start: 20060130, end: 20060329
  4. SYNAGIS [Suspect]
     Dosage: 75 MG, 1 IN 1 M, INTRAMUSCULAR
     Route: 030
     Dates: start: 20060130
  5. SYNAGIS [Suspect]
     Dosage: 100 MG, 1 IN 1 M, INTRAMUSCULAR
     Route: 030
     Dates: start: 20060227
  6. VITAMIN D [Concomitant]
  7. FLUOR [Concomitant]

REACTIONS (1)
  - BRONCHIOLITIS [None]
